FAERS Safety Report 9253411 (Version 2)
Quarter: 2013Q2

REPORT INFORMATION
  Report Type: Report from Study
  Country: DE (occurrence: DE)
  Receive Date: 20130425
  Receipt Date: 20130627
  Transmission Date: 20140414
  Serious: Yes (Death, Other)
  Sender: FDA-Public Use
  Company Number: DE-ROCHE-1218045

PATIENT
  Sex: Female
  Weight: 57.5 kg

DRUGS (2)
  1. METHOXY POLYETHYLENE GLYCOL-EPOETIN BETA [Suspect]
     Indication: NEPHROGENIC ANAEMIA
     Dosage: DATE OF LAST DOSE PRIOR TO SAE: 08/AUG/2012
     Route: 042
     Dates: start: 20110711
  2. ARANESP [Suspect]
     Indication: NEPHROGENIC ANAEMIA
     Route: 065

REACTIONS (3)
  - Malignant neoplasm progression [Fatal]
  - General physical health deterioration [Unknown]
  - Bone pain [Unknown]
